FAERS Safety Report 14748580 (Version 1)
Quarter: 2018Q2

REPORT INFORMATION
  Report Type: Spontaneous
  Country: US (occurrence: US)
  Receive Date: 20180411
  Receipt Date: 20180411
  Transmission Date: 20180711
  Serious: No
  Sender: FDA-Public Use
  Company Number: US-AMGEN-USASP2017166388

PATIENT
  Age: 95 Year
  Sex: Female

DRUGS (1)
  1. PROLIA [Suspect]
     Active Substance: DENOSUMAB
     Indication: OSTEOPOROSIS POSTMENOPAUSAL
     Dosage: UNK
     Route: 065
     Dates: start: 201509

REACTIONS (8)
  - Pruritus [Unknown]
  - Rash [Unknown]
  - Drug dose omission [Unknown]
  - Back pain [Unknown]
  - Myalgia [Unknown]
  - Urticaria [Unknown]
  - Adverse event [Unknown]
  - Dermatitis [Unknown]

NARRATIVE: CASE EVENT DATE: 201709
